FAERS Safety Report 25364472 (Version 1)
Quarter: 2025Q2

REPORT INFORMATION
  Report Type: Spontaneous
  Country: US (occurrence: US)
  Receive Date: 20250527
  Receipt Date: 20250527
  Transmission Date: 20250716
  Serious: Yes (Other)
  Sender: BAYER HEALTHCARE PHARMACEUTICALS INC.
  Company Number: US-BAYER-2025A069323

PATIENT

DRUGS (2)
  1. VITRAKVI [Suspect]
     Active Substance: LAROTRECTINIB
  2. VITRAKVI [Suspect]
     Active Substance: LAROTRECTINIB
     Dosage: 75 MG, BID

REACTIONS (1)
  - Hepatotoxicity [Recovering/Resolving]
